FAERS Safety Report 6266352-5 (Version None)
Quarter: 2009Q3

REPORT INFORMATION
  Report Type: 
  Country: None (occurrence: None)
  Receive Date: 20090713
  Receipt Date: 20090706
  Transmission Date: 20100115
  Serious: Yes (Other)
  Sender: FDA-Public Use
  Company Number: US-ELI_LILLY_AND_COMPANY-US200907000888

PATIENT
  Sex: Female

DRUGS (1)
  1. HUMALOG [Suspect]
     Dosage: UNK, UNK
     Route: 058
     Dates: start: 19940101

REACTIONS (5)
  - BLOOD GLUCOSE DECREASED [None]
  - CATARACT [None]
  - DRUG INEFFECTIVE [None]
  - HYPERGLYCAEMIA [None]
  - TOE AMPUTATION [None]
